FAERS Safety Report 20478544 (Version 1)
Quarter: 2022Q1

REPORT INFORMATION
  Report Type: Spontaneous
  Country: CA (occurrence: CA)
  Receive Date: 20220216
  Receipt Date: 20220216
  Transmission Date: 20220423
  Serious: Yes (Death)
  Sender: FDA-Public Use
  Company Number: None

PATIENT
  Age: 84 Year
  Sex: Female
  Weight: 66 kg

DRUGS (16)
  1. METHOTREXATE [Interacting]
     Active Substance: METHOTREXATE
     Indication: Pemphigoid
     Dosage: 1 EVERY 1 WEEKS
     Route: 048
  2. CIPROFLOXACIN [Interacting]
     Active Substance: CIPROFLOXACIN
     Indication: Incision site cellulitis
     Dosage: 2 EVERY 1 DAYS, SOLUTION INTRAVENOUS
     Route: 042
  3. CEFTRIAXONE [Concomitant]
     Active Substance: CEFTRIAXONE
  4. CLOBETASOL [Concomitant]
     Active Substance: CLOBETASOL
  5. FUROSEMIDE [Concomitant]
     Active Substance: FUROSEMIDE
     Route: 065
  6. GRANULOCYTE COLONY STIMULATING FACT [Concomitant]
  7. HYDROCORTISONE [Concomitant]
     Active Substance: HYDROCORTISONE
  8. LEUCOVORIN [Concomitant]
     Active Substance: LEUCOVORIN
  9. MEROPENEM [Concomitant]
     Active Substance: MEROPENEM
     Dosage: POWDER FOR SOLUTION INTRAVENOUS
  10. METRONIDAZOLE [Concomitant]
     Active Substance: METRONIDAZOLE
  11. MIDAZOLAM [Concomitant]
     Active Substance: MIDAZOLAM
  12. PANTOPRAZOLE [Concomitant]
     Active Substance: PANTOPRAZOLE
  13. SEPTRA [Concomitant]
     Active Substance: SULFAMETHOXAZOLE\TRIMETHOPRIM
     Dosage: SOLUTION INTRAVENOUS
  14. SODIUM BICARBONATE [Concomitant]
     Active Substance: SODIUM BICARBONATE
  15. SODIUM CHLORIDE [Concomitant]
     Active Substance: SODIUM CHLORIDE
  16. VANCOMYCIN [Concomitant]
     Active Substance: VANCOMYCIN

REACTIONS (8)
  - Blister [Fatal]
  - Blood creatinine increased [Fatal]
  - Drug interaction [Fatal]
  - Neutropenia [Fatal]
  - Pruritus [Fatal]
  - Skin exfoliation [Fatal]
  - Stevens-Johnson syndrome [Fatal]
  - White blood cell count decreased [Fatal]
